FAERS Safety Report 8765157 (Version 7)
Quarter: 2014Q4

REPORT INFORMATION
  Report Type: Report from Study
  Country: JP (occurrence: JP)
  Receive Date: 20120903
  Receipt Date: 20141031
  Transmission Date: 20150529
  Serious: Yes (Hospitalization, Other)
  Sender: FDA-Public Use
  Company Number: JP-009507513-1206USA00654

PATIENT
  Age: 89 Year
  Sex: Female

DRUGS (18)
  1. MAGNESIUM OXIDE. [Concomitant]
     Active Substance: MAGNESIUM OXIDE
  2. FLUTORIA [Concomitant]
     Dosage: 0.5 MG, UNK
  3. REMINYL [Concomitant]
     Active Substance: GALANTAMINE
     Dosage: 4 MG, UNK
     Dates: start: 20120602, end: 20120705
  4. NEUROTROPIN [Concomitant]
     Active Substance: NEUROTROPIN
  5. NEO VITACAIN [Concomitant]
     Dosage: UNK
     Dates: end: 20140306
  6. RINLAXER [Concomitant]
     Active Substance: CHLORPHENESIN CARBAMATE
     Dosage: UNK
     Dates: start: 20120209
  7. REMINYL [Concomitant]
     Active Substance: GALANTAMINE
     Dosage: 8 MG, UNK
  8. FLUTORIA [Concomitant]
     Dosage: 1 MG, UNK
     Dates: start: 20121122
  9. SELBEX [Concomitant]
     Active Substance: TEPRENONE
  10. FOSAMAX [Concomitant]
     Active Substance: ALENDRONATE SODIUM
     Route: 048
  11. VOLTAREN [Concomitant]
     Active Substance: DICLOFENAC SODIUM
     Dosage: UNK
     Dates: start: 20120201, end: 20120324
  12. REMINYL [Concomitant]
     Active Substance: GALANTAMINE
     Dosage: 8 MG, UNK
     Dates: start: 20120706
  13. GLACTIV [Suspect]
     Active Substance: SITAGLIPTIN
     Indication: TYPE 2 DIABETES MELLITUS
     Dosage: 25 MG, QD
     Route: 048
     Dates: start: 20110428
  14. TAKEPRON [Concomitant]
     Active Substance: LANSOPRAZOLE
  15. LOXONIN [Concomitant]
     Active Substance: LOXOPROFEN SODIUM
     Dosage: UNK
     Dates: start: 20120201
  16. LUPRAC [Concomitant]
     Active Substance: TORSEMIDE
     Dosage: UNK
     Dates: start: 20121122
  17. ENTERONON R [Concomitant]
     Dosage: UNK
     Dates: start: 20130214, end: 20130228
  18. FLOMOX [Concomitant]
     Active Substance: CEFCAPENE PIVOXIL HYDROCHLORIDE HYDRATE
     Dosage: UNK
     Dates: start: 20130214, end: 20130228

REACTIONS (6)
  - Urinary tract infection [Recovered/Resolved]
  - Oedema [Recovered/Resolved]
  - Dementia [Not Recovered/Not Resolved]
  - Lumbar vertebral fracture [Recovered/Resolved]
  - Osteoporosis [Not Recovered/Not Resolved]
  - Diabetes mellitus [Recovered/Resolved]

NARRATIVE: CASE EVENT DATE: 20120127
